FAERS Safety Report 4285283-3 (Version None)
Quarter: 2004Q1

REPORT INFORMATION
  Report Type: 
  Country: None (occurrence: None)
  Receive Date: 20040202
  Receipt Date: 20040119
  Transmission Date: 20041129
  Serious: Yes (Life-Threatening)
  Sender: FDA-Public Use
  Company Number: NO-JNJFOC-20040101895

PATIENT
  Age: 71 Year
  Sex: Male

DRUGS (17)
  1. REMICADE [Suspect]
     Indication: RHEUMATOID ARTHRITIS
     Dosage: SEE IMAGE
     Route: 042
     Dates: start: 20030106, end: 20030106
  2. REMICADE [Suspect]
     Indication: RHEUMATOID ARTHRITIS
     Dosage: SEE IMAGE
     Route: 042
     Dates: start: 20030204, end: 20030204
  3. REMICADE [Suspect]
     Indication: RHEUMATOID ARTHRITIS
     Dosage: SEE IMAGE
     Route: 042
     Dates: start: 20030226, end: 20030226
  4. REMICADE [Suspect]
     Indication: RHEUMATOID ARTHRITIS
     Dosage: SEE IMAGE
     Route: 042
     Dates: start: 20030422, end: 20030422
  5. REMICADE [Suspect]
     Indication: RHEUMATOID ARTHRITIS
     Dosage: SEE IMAGE
     Route: 042
     Dates: start: 20030618, end: 20030618
  6. REMICADE [Suspect]
     Indication: RHEUMATOID ARTHRITIS
     Dosage: SEE IMAGE
     Route: 042
     Dates: start: 20030812, end: 20030812
  7. REMICADE [Suspect]
     Indication: RHEUMATOID ARTHRITIS
     Dosage: SEE IMAGE
     Route: 042
     Dates: start: 20031107, end: 20031107
  8. METHOTREXATE [Concomitant]
  9. PREDNISOLONE [Concomitant]
  10. CONFORTID (INDOMETACIN) [Concomitant]
  11. IMDUR [Concomitant]
  12. ZOCOR [Concomitant]
  13. FOLIC ACID [Concomitant]
  14. ALBYL-E (ALBYL-ENTEROSOLUBILE) [Concomitant]
  15. PARAGALIN FORTE (PANADEINE CO) TABLETS [Concomitant]
  16. CALCIGRAN (CALCIGRAN) [Concomitant]
  17. APROVEL (IRBESARTAN) [Concomitant]

REACTIONS (16)
  - AZOTAEMIA [None]
  - BLOOD URINE [None]
  - ESCHERICHIA INFECTION [None]
  - FALL [None]
  - FEELING ABNORMAL [None]
  - GENERAL PHYSICAL HEALTH DETERIORATION [None]
  - HAEMOGLOBIN DECREASED [None]
  - HYPOTENSION [None]
  - JOINT DISLOCATION [None]
  - POST PROCEDURAL COMPLICATION [None]
  - PYREXIA [None]
  - RED BLOOD CELL SEDIMENTATION RATE INCREASED [None]
  - SEPSIS [None]
  - SWELLING [None]
  - SYNCOPE [None]
  - URINARY TRACT INFECTION [None]
